FAERS Safety Report 9926172 (Version 2)
Quarter: 2014Q2

REPORT INFORMATION
  Report Type: Spontaneous
  Country: US (occurrence: US)
  Receive Date: 20140226
  Receipt Date: 20140610
  Transmission Date: 20141212
  Serious: Yes (Hospitalization)
  Sender: FDA-Public Use
  Company Number: US-UCBSA-113117

PATIENT
  Age: 23 Year
  Sex: Female
  Weight: 46 kg

DRUGS (8)
  1. VIMPAT [Suspect]
     Indication: STATUS EPILEPTICUS
     Dosage: 200 MG, 2X/DAY (BID)
     Dates: start: 20131101
  2. VIMPAT [Suspect]
     Indication: CONVULSION
  3. PENTOBARBITAL [Concomitant]
     Indication: CONVULSION
     Dosage: TITRATED DRIP
     Route: 042
     Dates: start: 20131101, end: 201402
  4. TOPAMAX [Concomitant]
     Indication: CONVULSION
     Dosage: 200 MG, 2X/DAY (BID)
  5. PHENYTOIN [Concomitant]
     Indication: CONVULSION
     Dosage: 300 MG, 2X/DAY (BID)
  6. VALIUM [Concomitant]
     Indication: CONVULSION
     Dosage: 10 MG, 3X/DAY (TID)
  7. PHENOBARBITAL [Concomitant]
     Indication: CONVULSION
     Dosage: 60 MG, 2X/DAY (BID)
  8. FOSPHENYTOIN [Concomitant]

REACTIONS (1)
  - Macroglossia [Recovering/Resolving]
